FAERS Safety Report 5565081-0 (Version None)
Quarter: 2007Q4

REPORT INFORMATION
  Report Type: 
  Country: None (occurrence: None)
  Receive Date: 20071218
  Receipt Date: 20071205
  Transmission Date: 20080405
  Serious: Yes (Death)
  Sender: FDA-Public Use
  Company Number: FR-ASTRAZENECA-2007CG01780

PATIENT
  Age: 15 Year
  Sex: Male

DRUGS (2)
  1. DIPRIVAN [Suspect]
     Indication: SEDATION
     Route: 042
     Dates: start: 20070903, end: 20070904
  2. DIPRIVAN [Suspect]
     Route: 042
     Dates: start: 20070904, end: 20070907

REACTIONS (2)
  - OVERDOSE [None]
  - PROPOFOL INFUSION SYNDROME [None]
